FAERS Safety Report 6058616-5 (Version None)
Quarter: 2009Q1

REPORT INFORMATION
  Report Type: 
  Country: None (occurrence: None)
  Receive Date: 20090130
  Receipt Date: 20090122
  Transmission Date: 20090719
  Serious: Yes (Other)
  Sender: FDA-Public Use
  Company Number: US-BAYER-200911586NA

PATIENT
  Sex: Female

DRUGS (1)
  1. MIRENA [Suspect]
     Indication: DRUG USE FOR UNKNOWN INDICATION
     Route: 015
     Dates: start: 20070601, end: 20080601

REACTIONS (9)
  - DYSPAREUNIA [None]
  - EMOTIONAL DISORDER [None]
  - FATIGUE [None]
  - IUCD COMPLICATION [None]
  - IUD MIGRATION [None]
  - MALAISE [None]
  - MOOD SWINGS [None]
  - PAIN [None]
  - VAGINAL HAEMORRHAGE [None]
